FAERS Safety Report 9776479 (Version 1)
Quarter: 2013Q4

REPORT INFORMATION
  Report Type: Spontaneous
  Country: IT (occurrence: IT)
  Receive Date: 20131220
  Receipt Date: 20131220
  Transmission Date: 20140711
  Serious: Yes (Hospitalization)
  Sender: FDA-Public Use
  Company Number: IT-ACTAVIS-2013-23766

PATIENT
  Age: 52 Year
  Sex: Female

DRUGS (3)
  1. IBUPROFEN (UNKNOWN) [Suspect]
     Indication: DENTAL CARE
     Dosage: 1 DF, TOTAL
     Route: 048
     Dates: start: 20130911, end: 20130911
  2. COVERLAM [Concomitant]
     Indication: HYPERTENSION
     Dosage: 15 MG, UNK
     Route: 048
  3. KLAIRA [Concomitant]
     Indication: PRODUCT USED FOR UNKNOWN INDICATION
     Dosage: UNK
     Route: 065

REACTIONS (4)
  - Hyperaemia [Recovered/Resolved]
  - Lip oedema [Recovered/Resolved]
  - Periorbital oedema [Recovered/Resolved]
  - Pharyngeal oedema [Recovered/Resolved]
